FAERS Safety Report 10502592 (Version 1)
Quarter: 2014Q4

REPORT INFORMATION
  Report Type: Spontaneous
  Country: US (occurrence: None)
  Receive Date: 20141003
  Receipt Date: 20141003
  Transmission Date: 20150528
  Serious: Yes (Other)
  Sender: FDA-Public Use
  Company Number: KAD201409-001170

PATIENT

DRUGS (2)
  1. PEGATRON [Suspect]
     Active Substance: PEGINTERFERON ALFA-2B\RIBAVIRIN
  2. RIBAVIRIN (RIBAVIRIN) [Suspect]
     Active Substance: RIBAVIRIN

REACTIONS (8)
  - Fatigue [None]
  - Myalgia [None]
  - Quality of life decreased [None]
  - Immune system disorder [None]
  - Malaise [None]
  - Alopecia [None]
  - Anxiety [None]
  - Bone pain [None]
